FAERS Safety Report 12720708 (Version 1)
Quarter: 2016Q3

REPORT INFORMATION
  Report Type: Spontaneous
  Country: US (occurrence: US)
  Receive Date: 20160907
  Receipt Date: 20160907
  Transmission Date: 20161109
  Serious: Yes (Disabling, Other)
  Sender: FDA-Public Use
  Company Number: None

PATIENT
  Age: 31 Year
  Sex: Female
  Weight: 93.52 kg

DRUGS (2)
  1. MAGNESIUM SUPPLEMENT [Concomitant]
  2. MIRENA [Suspect]
     Active Substance: LEVONORGESTREL
     Indication: MENORRHAGIA
     Route: 015
     Dates: start: 20160722, end: 20160906

REACTIONS (5)
  - Product label confusion [None]
  - Insomnia [None]
  - Mood altered [None]
  - Impaired work ability [None]
  - Anxiety [None]

NARRATIVE: CASE EVENT DATE: 20160906
